FAERS Safety Report 5600909-7 (Version None)
Quarter: 2007Q4

REPORT INFORMATION
  Report Type: 
  Country: None (occurrence: None)
  Receive Date: 20071226
  Receipt Date: 20070824
  Transmission Date: 20080405
  Serious: Yes (Hospitalization, Other)
  Sender: FDA-Public Use
  Company Number: 246024

PATIENT
  Age: 46 Year
  Sex: Female

DRUGS (4)
  1. RAPTIVA [Suspect]
     Indication: PSORIASIS
     Dosage: 1/WEEK, SUBCUTANEOUS
     Route: 058
     Dates: start: 20070628
  2. CYMBALTA [Concomitant]
  3. KENALOG [Concomitant]
  4. ALLEGRA [Concomitant]

REACTIONS (2)
  - HYPERSENSITIVITY [None]
  - PHOTOSENSITIVITY REACTION [None]
